FAERS Safety Report 4639055-8 (Version None)
Quarter: 2005Q2

REPORT INFORMATION
  Report Type: 
  Country: None (occurrence: None)
  Receive Date: 20050415
  Receipt Date: 20050415
  Transmission Date: 20051028
  Serious: Yes (Other)
  Sender: FDA-Public Use
  Company Number: None

PATIENT
  Sex: Male
  Weight: 80.7403 kg

DRUGS (8)
  1. FENTANYL [Suspect]
     Indication: BACK PAIN
     Dosage: 25 MCG PATCH Q48H
     Dates: start: 20050309, end: 20050316
  2. WELLBUTRIN XL [Concomitant]
  3. FIORINAL [Concomitant]
  4. ASPIRIN [Concomitant]
  5. LIPITOR [Concomitant]
  6. HYDROCHLOROTHIAZIDE [Concomitant]
  7. ZONEGRAN [Concomitant]
  8. PROVIGIL [Concomitant]

REACTIONS (4)
  - INADEQUATE ANALGESIA [None]
  - PHARMACEUTICAL PRODUCT COMPLAINT [None]
  - THERAPEUTIC RESPONSE UNEXPECTED WITH DRUG SUBSTITUTION [None]
  - TREMOR [None]
